FAERS Safety Report 8745624 (Version 2)
Quarter: 2012Q4

REPORT INFORMATION
  Report Type: 
  Country: US (occurrence: US)
  Receive Date: 20120826
  Receipt Date: 20120927
  Transmission Date: 20130627
  Serious: No
  Sender: FDA-Public Use
  Company Number: US-009507513-1207USA005297

PATIENT

DRUGS (2)
  1. PREGNYL [Suspect]
     Dosage: 10 ml one statndard dose vial
     Dates: start: 20120711
  2. HEXADROL TABLETS [Concomitant]

REACTIONS (1)
  - Medication error [Unknown]
